FAERS Safety Report 14586153 (Version 1)
Quarter: 2018Q1

REPORT INFORMATION
  Report Type: Spontaneous
  Country: US (occurrence: US)
  Receive Date: 20180228
  Receipt Date: 20180228
  Transmission Date: 20180509
  Serious: No
  Sender: FDA-Public Use
  Company Number: None

PATIENT
  Age: 34 Year
  Sex: Male

DRUGS (1)
  1. MYCOPHENOLATE MOFETIL CAP 250MG [Suspect]
     Active Substance: MYCOPHENOLATE MOFETIL

REACTIONS (4)
  - Viral infection [None]
  - Respiratory tract congestion [None]
  - Pulmonary congestion [None]
  - Malaise [None]

NARRATIVE: CASE EVENT DATE: 20180227
